FAERS Safety Report 6432125-3 (Version None)
Quarter: 2009Q4

REPORT INFORMATION
  Report Type: 
  Country: None (occurrence: None)
  Receive Date: 20091105
  Receipt Date: 20091023
  Transmission Date: 20100525
  Serious: Yes (Life-Threatening)
  Sender: FDA-Public Use
  Company Number: MOZO-1000269

PATIENT

DRUGS (2)
  1. PLERIXAFOR (PLERIXAFOR) SOLUTION FOR INJECTION [Suspect]
     Indication: HAEMATOPOIETIC STEM CELL MOBILISATION
     Dosage: SUBCUTANEOUS
     Route: 058
  2. GRANULOCYTE COLONY STIMULATING FACTOR(GRANULOCYTE COLONY STMIULATING F [Suspect]

REACTIONS (1)
  - BLOOD STEM CELL TRANSPLANT FAILURE [None]
